FAERS Safety Report 6037881-4 (Version None)
Quarter: 2009Q1

REPORT INFORMATION
  Report Type: 
  Country: None (occurrence: None)
  Receive Date: 20090115
  Receipt Date: 20090112
  Transmission Date: 20090719
  Serious: Yes (Other)
  Sender: FDA-Public Use
  Company Number: CH-BRISTOL-MYERS SQUIBB COMPANY-14465959

PATIENT
  Age: 60 Year
  Sex: Female
  Weight: 50 kg

DRUGS (9)
  1. ORENCIA [Suspect]
     Indication: RHEUMATOID ARTHRITIS
     Dosage: FORM = INJ
     Route: 042
     Dates: start: 20081016, end: 20081211
  2. FOSAMAX [Concomitant]
  3. ASPIRIN [Concomitant]
  4. NEXIUM [Concomitant]
  5. PREDNISONE [Concomitant]
  6. TOLVON [Concomitant]
  7. LAXOBERON [Concomitant]
  8. DEPAKENE [Concomitant]
  9. XANAX [Concomitant]

REACTIONS (3)
  - ANOREXIA [None]
  - DYSPEPSIA [None]
  - TRANSAMINASES INCREASED [None]
